FAERS Safety Report 8623032-6 (Version None)
Quarter: 2012Q3

REPORT INFORMATION
  Report Type: 
  Country: None (occurrence: None)
  Receive Date: 20120827
  Receipt Date: 20120815
  Transmission Date: 20120928
  Serious: Yes (Hospitalization)
  Sender: FDA-Public Use
  Company Number: RU-NOVOPROD-358224

PATIENT
  Age: 47 Year
  Sex: Female
  Weight: 157.7 kg

DRUGS (3)
  1. VICTOZA [Suspect]
     Dosage: 3.0 MG, QD
     Route: 058
     Dates: end: 20120806
  2. VICTOZA [Suspect]
     Dosage: 3.0 MG, QD
     Route: 058
  3. VICTOZA [Suspect]
     Indication: OBESITY
     Dosage: 0.6 MG, QD
     Route: 058
     Dates: start: 20110927

REACTIONS (1)
  - CHOLECYSTITIS [None]
